FAERS Safety Report 4318635-3 (Version None)
Quarter: 2004Q1

REPORT INFORMATION
  Report Type: 
  Country: None (occurrence: None)
  Receive Date: 20040315
  Receipt Date: 20040315
  Transmission Date: 20041129
  Serious: Yes (Hospitalization)
  Sender: FDA-Public Use
  Company Number: None

PATIENT
  Age: 24 Year
  Sex: Female

DRUGS (4)
  1. LAMICTAL [Suspect]
     Indication: CONVULSION
     Dosage: LAMICTAL  25 MG BID
     Route: 048
  2. VALPROIC ACID [Suspect]
     Indication: DEPRESSION
     Dosage: DEPAKOTE 1 GM PO BID
  3. ZOCOR [Concomitant]
  4. EFFEXOR [Concomitant]

REACTIONS (4)
  - DISSEMINATED INTRAVASCULAR COAGULATION [None]
  - PYREXIA [None]
  - RASH [None]
  - RHABDOMYOLYSIS [None]
